FAERS Safety Report 8389644-2 (Version None)
Quarter: 2012Q2

REPORT INFORMATION
  Report Type: 
  Country: None (occurrence: None)
  Receive Date: 20120528
  Receipt Date: 20120516
  Transmission Date: 20120825
  Serious: Yes (Hospitalization, Other)
  Sender: FDA-Public Use
  Company Number: US-ROCHE-1019523

PATIENT
  Sex: Female
  Weight: 64.014 kg

DRUGS (5)
  1. PEGASYS [Suspect]
     Indication: HEPATITIS C
     Dates: start: 20110518, end: 20111117
  2. COPEGUS [Suspect]
     Indication: HEPATITIS C
     Dates: start: 20110518, end: 20111117
  3. ONDANSETRON [Concomitant]
  4. WELLBUTRIN [Concomitant]
     Indication: DEPRESSION
  5. WELLBUTRIN [Concomitant]
     Indication: EX-TOBACCO USER

REACTIONS (9)
  - PNEUMONIA [None]
  - MOOD SWINGS [None]
  - WHITE BLOOD CELL COUNT DECREASED [None]
  - DEPRESSION [None]
  - HAEMATEMESIS [None]
  - ANAEMIA [None]
  - ALOPECIA [None]
  - WEIGHT DECREASED [None]
  - NAUSEA [None]
